FAERS Safety Report 6765686-5 (Version None)
Quarter: 2010Q2

REPORT INFORMATION
  Report Type: 
  Country: None (occurrence: None)
  Receive Date: 20100611
  Receipt Date: 20100528
  Transmission Date: 20101027
  Serious: Yes (Hospitalization, Other)
  Sender: FDA-Public Use
  Company Number: US-ELI_LILLY_AND_COMPANY-US200909003667

PATIENT
  Sex: Female
  Weight: 56.236 kg

DRUGS (7)
  1. FORTEO [Suspect]
     Indication: OSTEOPOROSIS
     Dosage: 20 UG, DAILY (1/D)
     Dates: start: 20090722
  2. VITAMIN A+D [Concomitant]
  3. VITAMIN D [Concomitant]
  4. VITAMIN B-12 [Concomitant]
  5. ZOLOFT [Concomitant]
  6. CALCITRIOL [Concomitant]
  7. CALCIUM CARBONATE [Concomitant]

REACTIONS (4)
  - DEVICE MISUSE [None]
  - FALL [None]
  - HIP FRACTURE [None]
  - LOWER LIMB FRACTURE [None]
